FAERS Safety Report 20579507 (Version 1)
Quarter: 2022Q1

REPORT INFORMATION
  Report Type: Spontaneous
  Country: US (occurrence: US)
  Receive Date: 20220310
  Receipt Date: 20220310
  Transmission Date: 20220423
  Serious: No
  Sender: FDA-Public Use
  Company Number: US-ORGANON-O2203USA000929

PATIENT
  Age: 17 Year
  Sex: Female
  Weight: 65.7 kg

DRUGS (1)
  1. NEXPLANON [Suspect]
     Active Substance: ETONOGESTREL
     Dosage: ONE EVERY THREE YEARS (LEFT ARM)
     Route: 059
     Dates: start: 20220225

REACTIONS (2)
  - Implant site pain [Unknown]
  - Complication associated with device [Unknown]

NARRATIVE: CASE EVENT DATE: 20220307
